FAERS Safety Report 7032015-1 (Version None)
Quarter: 2010Q4

REPORT INFORMATION
  Report Type: 
  Country: None (occurrence: None)
  Receive Date: 20101005
  Receipt Date: 20100922
  Transmission Date: 20110411
  Serious: Yes (Hospitalization)
  Sender: FDA-Public Use
  Company Number: 2009247088

PATIENT
  Age: 40 Year
  Sex: Female

DRUGS (5)
  1. FRAGMIN [Suspect]
     Dosage: 212500 IU, SINGLE
  2. CITALOPRAM (CITALOPRAM) [Suspect]
     Indication: DEEP VEIN THROMBOSIS
     Dosage: ORAL
     Route: 048
  3. LAMOTRIGINE [Suspect]
     Dosage: ORAL
     Route: 048
  4. PROMETHAZINE (PROMETHAZINE) [Suspect]
     Dosage: ORAL
     Route: 048
  5. ACETYLISALICYLIC ACID (ACETYLSALICYLIC ACID) [Suspect]
     Dosage: ORAL
     Route: 048

REACTIONS (9)
  - ACTIVATED PARTIAL THROMBOPLASTIN TIME PROLONGED [None]
  - COMA SCALE ABNORMAL [None]
  - HAEMOGLOBIN DECREASED [None]
  - INCORRECT DOSE ADMINISTERED [None]
  - INJECTION SITE HAEMORRHAGE [None]
  - NEEDLE TRACK MARKS [None]
  - POISONING DELIBERATE [None]
  - SOMNOLENCE [None]
  - SUICIDE ATTEMPT [None]
